FAERS Safety Report 23044507 (Version 1)
Quarter: 2023Q4

REPORT INFORMATION
  Report Type: Spontaneous
  Country: RO (occurrence: RO)
  Receive Date: 20231009
  Receipt Date: 20231009
  Transmission Date: 20240109
  Serious: Yes (Other)
  Sender: FDA-Public Use
  Company Number: None

PATIENT
  Age: 27 Year
  Sex: Male

DRUGS (2)
  1. OLANZAPINE [Suspect]
     Active Substance: OLANZAPINE
     Indication: Antipsychotic therapy
     Dosage: DAILY DOSE: 10 MILLIGRAM
  2. VALPROIC ACID [Suspect]
     Active Substance: VALPROIC ACID
     Indication: Mood swings
     Dosage: DAILY DOSE: 1.5 GRAM

REACTIONS (6)
  - Hepatic cytolysis [Unknown]
  - Leukopenia [Unknown]
  - Thrombocytopenia [Unknown]
  - Extrapyramidal disorder [Unknown]
  - Mania [Unknown]
  - Lymphopenia [Unknown]
